FAERS Safety Report 4392175-8 (Version None)
Quarter: 2004Q3

REPORT INFORMATION
  Report Type: 
  Country: None (occurrence: None)
  Receive Date: 20040702
  Receipt Date: 20040330
  Transmission Date: 20050211
  Serious: Yes (Other)
  Sender: FDA-Public Use
  Company Number: 2004UW06305

PATIENT
  Age: 54 Year
  Sex: Male
  Weight: 73.9363 kg

DRUGS (2)
  1. CRESTOR [Suspect]
     Indication: BLOOD CHOLESTEROL INCREASED
     Dosage: 10 MG PO
     Route: 048
  2. BENADRYL ^WARNER-LAMBERT^   /USA/ [Concomitant]

REACTIONS (3)
  - FATIGUE [None]
  - HEART RATE INCREASED [None]
  - VERTIGO [None]
